FAERS Safety Report 4989728-2 (Version None)
Quarter: 2006Q2

REPORT INFORMATION
  Report Type: 
  Country: None (occurrence: None)
  Receive Date: 20060428
  Receipt Date: 20060418
  Transmission Date: 20061013
  Serious: Yes (Disabling, Other)
  Sender: FDA-Public Use
  Company Number: HQWYE334824MAR05

PATIENT
  Age: 37 Year
  Sex: Male
  Weight: 93.07 kg

DRUGS (4)
  1. EFFEXOR [Suspect]
     Indication: DEPRESSION
     Dosage: MG 1X PER 1 DAY, ORAL
     Route: 048
     Dates: start: 20050221, end: 20050314
  2. CYMBALTA [Suspect]
     Dosage: UNKNOWN
     Route: 065
     Dates: end: 20050301
  3. OXYCODONE (OXYCODONE) [Concomitant]
  4. DURAGESIC-100 [Concomitant]

REACTIONS (14)
  - BLINDNESS [None]
  - BLOOD PRESSURE SYSTOLIC INCREASED [None]
  - CHEST PAIN [None]
  - COGNITIVE DISORDER [None]
  - CONFUSIONAL STATE [None]
  - DELUSION [None]
  - EMOTIONAL DISORDER [None]
  - FEAR [None]
  - HALLUCINATION [None]
  - HEADACHE [None]
  - HEART RATE INCREASED [None]
  - PARANOIA [None]
  - PSYCHOTIC DISORDER [None]
  - RASH [None]
